FAERS Safety Report 10494359 (Version 1)
Quarter: 2014Q4

REPORT INFORMATION
  Report Type: Spontaneous
  Country: US (occurrence: None)
  Receive Date: 20141002
  Receipt Date: 20141002
  Transmission Date: 20150528
  Serious: Yes (Hospitalization, Disabling)
  Sender: FDA-Public Use
  Company Number: None

PATIENT
  Age: 65 Year
  Sex: Female
  Weight: 76.2 kg

DRUGS (1)
  1. PROLIA [Suspect]
     Active Substance: DENOSUMAB
     Indication: OSTEOPOROSIS
     Dosage: INJECTION, EVERY 6 MO, INJECTION IN ARM BY NURSE
     Dates: start: 20140501

REACTIONS (6)
  - Pancreatitis [None]
  - Pain [None]
  - Dehydration [None]
  - Fatigue [None]
  - Gastrooesophageal reflux disease [None]
  - Fibromyalgia [None]

NARRATIVE: CASE EVENT DATE: 20140711
